FAERS Safety Report 8973055 (Version 1)
Quarter: 2012Q4

REPORT INFORMATION
  Report Type: 
  Country: US (occurrence: US)
  Receive Date: 20121219
  Receipt Date: 20121219
  Transmission Date: 20130627
  Serious: Yes (Hospitalization, Other)
  Sender: FDA-Public Use
  Company Number: US-AMGEN-USASP2011001770

PATIENT
  Age: 31 Year
  Sex: Female

DRUGS (2)
  1. ENBREL [Suspect]
     Indication: RHEUMATOID ARTHRITIS
     Dosage: 50 mg, qwk
     Route: 058
     Dates: start: 20050906, end: 20101201
  2. PRENATAL VITAMINS                  /01549301/ [Concomitant]
     Dosage: UNK UNK, qd
     Route: 048

REACTIONS (5)
  - Gastrooesophageal reflux disease [Unknown]
  - Gestational diabetes [Recovered/Resolved]
  - Hyperthyroidism [Recovered/Resolved]
  - Weight gain poor [Unknown]
  - Rheumatoid arthritis [Unknown]
